FAERS Safety Report 8953903 (Version 1)
Quarter: 2012Q4

REPORT INFORMATION
  Report Type: 
  Country: JP (occurrence: JP)
  Receive Date: 20121206
  Receipt Date: 20121206
  Transmission Date: 20130627
  Serious: Yes (Hospitalization)
  Sender: FDA-Public Use
  Company Number: JP-BAXTER-2012BAX025642

PATIENT
  Sex: Male
  Weight: 70 kg

DRUGS (3)
  1. DIANEAL-N PD-4 1.5 [Suspect]
     Indication: GLOMERULONEPHRITIS CHRONIC
     Route: 033
     Dates: start: 20080301
  2. DIANEAL-N PD-4 2.5 PD SOLUTION [Suspect]
     Indication: GLOMERULONEPHRITIS CHRONIC
     Route: 033
     Dates: start: 20080301
  3. EXTRANEAL [Suspect]
     Indication: GLOMERULONEPHRITIS CHRONIC
     Route: 033
     Dates: start: 20080301

REACTIONS (1)
  - Fluid retention [Recovering/Resolving]
